FAERS Safety Report 17044227 (Version 4)
Quarter: 2020Q1

REPORT INFORMATION
  Report Type: Spontaneous
  Country: ES (occurrence: ES)
  Receive Date: 20191118
  Receipt Date: 20200214
  Transmission Date: 20200409
  Serious: Yes (Other)
  Sender: FDA-Public Use
  Company Number: ES-ASTRAZENECA-2019SF41249

PATIENT
  Age: 76 Year
  Sex: Female

DRUGS (9)
  1. FULVESTRANT. [Suspect]
     Active Substance: FULVESTRANT
     Indication: BREAST CANCER
     Dosage: 500 MG, MONTHLY, (+500 MG D14)
     Route: 030
     Dates: start: 20181129, end: 20190513
  2. PALBOCICLIB [Suspect]
     Active Substance: PALBOCICLIB
     Indication: BREAST CANCER FEMALE
     Dosage: 125 MG/DAY (DAY1 TO DAY21
     Route: 048
     Dates: start: 20190520
  3. TRANXILIUM [Concomitant]
     Active Substance: CLORAZEPATE DIPOTASSIUM
     Dosage: 5 MG, UNK (AT BEDTIME)
  4. HYDROCHLOROTHIAZIDE. [Concomitant]
     Active Substance: HYDROCHLOROTHIAZIDE
     Route: 048
  5. PALBOCICLIB [Suspect]
     Active Substance: PALBOCICLIB
     Indication: BREAST CANCER FEMALE
     Dosage: 125 MG/DAY (DAY1 TO DAY21)
     Route: 048
     Dates: start: 20190304, end: 20190513
  6. FULVESTRANT. [Suspect]
     Active Substance: FULVESTRANT
     Indication: BREAST CANCER
     Route: 030
  7. PALBOCICLIB [Suspect]
     Active Substance: PALBOCICLIB
     Indication: BREAST CANCER FEMALE
     Dosage: 125 MG, CYCLIC (DAILY, 125 MG D1 TO D21 C / 28D)
     Route: 048
     Dates: start: 20181129, end: 20190225
  8. BISOPROLOL [Concomitant]
     Active Substance: BISOPROLOL
     Dosage: 10 MG, UNK
     Route: 065
  9. LETROZOL [Concomitant]
     Active Substance: LETROZOLE
     Route: 065
     Dates: start: 20160509

REACTIONS (8)
  - Asthenia [Not Recovered/Not Resolved]
  - Neutropenia [Unknown]
  - Spinal pain [Recovering/Resolving]
  - Alopecia [Unknown]
  - Dyspnoea [Recovering/Resolving]
  - Musculoskeletal chest pain [Unknown]
  - Musculoskeletal discomfort [Unknown]
  - Back pain [Unknown]

NARRATIVE: CASE EVENT DATE: 2019
